FAERS Safety Report 5553380-8 (Version None)
Quarter: 2007Q4

REPORT INFORMATION
  Report Type: 
  Country: None (occurrence: None)
  Receive Date: 20071130
  Receipt Date: 20070817
  Transmission Date: 20080405
  Serious: No
  Sender: FDA-Public Use
  Company Number: US200708004085

PATIENT
  Sex: Male

DRUGS (3)
  1. BYETTA [Suspect]
     Dosage: SUBCUTANEOUS
     Route: 058
  2. EXENATIDE STRENGTH PEN, DISPOSABLE DEVICE (EXENATIDE PEN) PEN, DISPOSA [Concomitant]
  3. GLUCOVANCE [Concomitant]

REACTIONS (1)
  - EARLY SATIETY [None]
